FAERS Safety Report 24289735 (Version 1)
Quarter: 2024Q3

REPORT INFORMATION
  Report Type: Spontaneous
  Country: GB (occurrence: GB)
  Receive Date: 20240906
  Receipt Date: 20240906
  Transmission Date: 20241017
  Serious: No
  Sender: ALKEM
  Company Number: None

PATIENT
  Age: 30 Year
  Sex: Female
  Weight: 128 kg

DRUGS (1)
  1. PREGABALIN [Suspect]
     Active Substance: PREGABALIN
     Indication: Neuralgia
     Dosage: 50 MILLIGRAM, BID (CAPSULE)
     Route: 065
     Dates: start: 20231127, end: 20231219

REACTIONS (1)
  - Nail injury [Unknown]

NARRATIVE: CASE EVENT DATE: 20231215
